FAERS Safety Report 16809722 (Version 6)
Quarter: 2021Q2

REPORT INFORMATION
  Report Type: Spontaneous
  Country: US (occurrence: US)
  Receive Date: 20190916
  Receipt Date: 20210407
  Transmission Date: 20210716
  Serious: Yes (Other)
  Sender: FDA-Public Use
  Company Number: US-GILEAD-2019-0428372

PATIENT
  Age: 46 Year
  Sex: Male

DRUGS (7)
  1. ATRIPLA [Suspect]
     Active Substance: EFAVIRENZ\EMTRICITABINE\TENOFOVIR DISOPROXIL FUMARATE
     Indication: HIV INFECTION
     Dosage: UNK
     Route: 048
     Dates: start: 2009
  2. DESCOVY [Concomitant]
     Active Substance: EMTRICITABINE\TENOFOVIR ALAFENAMIDE FUMARATE
  3. VITAMIN D [VITAMIN D NOS] [Concomitant]
     Active Substance: VITAMIN D NOS
     Indication: VITAMIN D DEFICIENCY
     Dosage: UNK
  4. ATRIPLA [Suspect]
     Active Substance: EFAVIRENZ\EMTRICITABINE\TENOFOVIR DISOPROXIL FUMARATE
     Indication: ACQUIRED IMMUNODEFICIENCY SYNDROME
  5. TRUVADA [Suspect]
     Active Substance: EMTRICITABINE\TENOFOVIR DISOPROXIL FUMARATE
     Indication: HIV INFECTION
     Dosage: UNK
     Route: 048
     Dates: start: 2005
  6. TRUVADA [Suspect]
     Active Substance: EMTRICITABINE\TENOFOVIR DISOPROXIL FUMARATE
     Indication: ACQUIRED IMMUNODEFICIENCY SYNDROME
     Dosage: UNK
     Route: 048
     Dates: start: 2009
  7. SYMTUZA [Concomitant]
     Active Substance: COBICISTAT\DARUNAVIR\EMTRICITABINE\TENOFOVIR ALAFENAMIDE

REACTIONS (15)
  - Blood creatinine increased [Not Recovered/Not Resolved]
  - Pain [Not Recovered/Not Resolved]
  - Bone loss [Unknown]
  - Anhedonia [Not Recovered/Not Resolved]
  - Anxiety [Not Recovered/Not Resolved]
  - Economic problem [Not Recovered/Not Resolved]
  - Glomerular filtration rate decreased [Not Recovered/Not Resolved]
  - Vitamin D deficiency [Not Recovered/Not Resolved]
  - Arthralgia [Not Recovered/Not Resolved]
  - Pain in extremity [Unknown]
  - Osteonecrosis [Unknown]
  - Bone density decreased [Not Recovered/Not Resolved]
  - Partner stress [Unknown]
  - Renal failure [Unknown]
  - Emotional distress [Not Recovered/Not Resolved]

NARRATIVE: CASE EVENT DATE: 20140124
